FAERS Safety Report 7941027-2 (Version None)
Quarter: 2011Q4

REPORT INFORMATION
  Report Type: 
  Country: None (occurrence: None)
  Receive Date: 20111128
  Receipt Date: 20111121
  Transmission Date: 20120403
  Serious: Yes (Other)
  Sender: FDA-Public Use
  Company Number: ES-BRISTOL-MYERS SQUIBB COMPANY-16147720

PATIENT
  Age: 72 Year
  Sex: Female

DRUGS (5)
  1. ENALAPRIL MALEATE [Suspect]
  2. FUROSEMIDE [Concomitant]
  3. METOCLOPRAMIDE [Suspect]
  4. METFORMIN HCL [Suspect]
     Indication: TYPE 2 DIABETES MELLITUS
  5. DICLOFENAC SODIUM [Suspect]

REACTIONS (2)
  - LACTIC ACIDOSIS [None]
  - RENAL FAILURE ACUTE [None]
